FAERS Safety Report 7805252-3 (Version None)
Quarter: 2011Q4

REPORT INFORMATION
  Report Type: 
  Country: None (occurrence: None)
  Receive Date: 20111010
  Receipt Date: 20110930
  Transmission Date: 20120403
  Serious: Yes (Hospitalization)
  Sender: FDA-Public Use
  Company Number: US-UCBSA-022082

PATIENT
  Age: 49 Year
  Sex: Female
  Weight: 65 kg

DRUGS (10)
  1. BENTYL [Concomitant]
     Dosage: Q 4-6 HRS
  2. CIMZIA [Suspect]
     Indication: CROHN'S DISEASE
     Route: 058
     Dates: start: 20101005
  3. PROTONIX [Concomitant]
  4. LOMOTIL [Concomitant]
     Dosage: PRN (AS NEEDED)
  5. POTASSIUM [Concomitant]
  6. EFFEXOR [Concomitant]
  7. LOVENOX [Concomitant]
  8. TOPIRAMATE [Concomitant]
  9. PHENERGAN HCL [Concomitant]
  10. TRAZODONE HYDROCHLORIDE [Concomitant]
     Dosage: QHS ( EVERY NIGHT AT BED TIME)

REACTIONS (2)
  - GASTROINTESTINAL HAEMORRHAGE [None]
  - FEMUR FRACTURE [None]
